FAERS Safety Report 11119556 (Version 1)
Quarter: 2015Q2

REPORT INFORMATION
  Report Type: Spontaneous
  Country: JP (occurrence: JP)
  Receive Date: 20150518
  Receipt Date: 20150518
  Transmission Date: 20150821
  Serious: Yes (Other)
  Sender: FDA-Public Use
  Company Number: JP-009507513-1505JPN007154

PATIENT
  Sex: Female

DRUGS (1)
  1. PROPECIA [Suspect]
     Active Substance: FINASTERIDE
     Dosage: DAILY DOSE UNKNOWN,ORAL ADMINISTRATION OF 1 MG EVERY TIME TO MAN PARTNER
     Route: 065

REACTIONS (2)
  - Exposure via father [Unknown]
  - Abortion [Unknown]
